FAERS Safety Report 6213328-X (Version None)
Quarter: 2009Q2

REPORT INFORMATION
  Report Type: 
  Country: None (occurrence: None)
  Receive Date: 20090601
  Receipt Date: 20090601
  Transmission Date: 20091009
  Serious: Yes (Other)
  Sender: FDA-Public Use
  Company Number: None

PATIENT
  Age: 50 Year
  Sex: Female
  Weight: 81.6475 kg

DRUGS (1)
  1. CLOZAPINE [Suspect]
     Indication: SCHIZOPHRENIA
     Dosage: 100MG  3 TABS TID PO
     Route: 048
     Dates: start: 20041001, end: 20041110

REACTIONS (3)
  - AGGRESSION [None]
  - PHYSICAL ABUSE [None]
  - PRODUCT SUBSTITUTION ISSUE [None]
